FAERS Safety Report 4733873-3 (Version None)
Quarter: 2005Q3

REPORT INFORMATION
  Report Type: 
  Country: None (occurrence: None)
  Receive Date: 20050729
  Receipt Date: 20050725
  Transmission Date: 20060218
  Serious: Yes (Other)
  Sender: FDA-Public Use
  Company Number: 200510096BFR

PATIENT
  Age: 58 Year
  Sex: Male

DRUGS (2)
  1. CIPROFLOXACIN [Suspect]
     Indication: PROSTATITIS
     Dosage: 500 MG, BID, ORAL
     Route: 048
     Dates: start: 20050111, end: 20050118
  2. LIPANOR [Concomitant]

REACTIONS (9)
  - GLOMERULONEPHRITIS [None]
  - HAEMATURIA [None]
  - INFLAMMATION [None]
  - MYALGIA [None]
  - OEDEMA PERIPHERAL [None]
  - PROTEINURIA [None]
  - RED BLOOD CELL SEDIMENTATION RATE INCREASED [None]
  - TENDONITIS [None]
  - VASCULITIS NECROTISING [None]
